FAERS Safety Report 6110221-8 (Version None)
Quarter: 2009Q1

REPORT INFORMATION
  Report Type: 
  Country: None (occurrence: None)
  Receive Date: 20090310
  Receipt Date: 20090227
  Transmission Date: 20090719
  Serious: Yes (Other)
  Sender: FDA-Public Use
  Company Number: PHHY2009AU05635

PATIENT
  Sex: Male

DRUGS (2)
  1. CLOZARIL [Suspect]
     Indication: PSYCHOTIC DISORDER
     Dosage: UNK
     Dates: start: 20020724, end: 20070201
  2. CLOZARIL [Suspect]
     Dosage: 350 MG DAILY
     Dates: start: 20070201

REACTIONS (9)
  - ANXIETY [None]
  - BENIGN CARDIAC NEOPLASM [None]
  - CARDIAC MYXOMA [None]
  - CARDIAC NEOPLASM UNSPECIFIED [None]
  - CLAUSTROPHOBIA [None]
  - ECHOCARDIOGRAM ABNORMAL [None]
  - HEART RATE INCREASED [None]
  - HYPERTENSION [None]
  - LIPOMA [None]
